FAERS Safety Report 8907268 (Version 4)
Quarter: 2013Q1

REPORT INFORMATION
  Report Type: Spontaneous
  Country: US (occurrence: US)
  Receive Date: 20121114
  Receipt Date: 20130131
  Transmission Date: 20140127
  Serious: No
  Sender: FDA-Public Use
  Company Number: US-009507513-1211USA005617

PATIENT
  Age: 74 None
  Sex: Female

DRUGS (6)
  1. ZETIA [Suspect]
     Indication: BLOOD CHOLESTEROL
     Dosage: 10 MG, QD
     Route: 048
     Dates: start: 20121016, end: 20121128
  2. ZETIA [Suspect]
     Indication: BLOOD TRIGLYCERIDES
  3. ASPIRIN [Concomitant]
     Dosage: UNK
  4. RAMIPRIL [Concomitant]
     Dosage: UNK
  5. METOPROLOL [Concomitant]
     Dosage: UNK
  6. HYDROCHLOROTHIAZIDE [Concomitant]
     Dosage: UNK

REACTIONS (17)
  - Faecal incontinence [Recovering/Resolving]
  - Sinus disorder [Recovering/Resolving]
  - Rhinorrhoea [Recovering/Resolving]
  - Sleep disorder [Not Recovered/Not Resolved]
  - Influenza like illness [Not Recovered/Not Resolved]
  - Hypothyroidism [Unknown]
  - Allergic sinusitis [Recovering/Resolving]
  - Malaise [Not Recovered/Not Resolved]
  - Pain in extremity [Recovering/Resolving]
  - Cough [Recovering/Resolving]
  - Rash [Recovering/Resolving]
  - Diarrhoea [Recovering/Resolving]
  - Asthenia [Recovering/Resolving]
  - Chest pain [Recovering/Resolving]
  - Myalgia [Recovering/Resolving]
  - Fatigue [Recovering/Resolving]
  - Arthralgia [Recovering/Resolving]
